FAERS Safety Report 7094422-0 (Version None)
Quarter: 2010Q4

REPORT INFORMATION
  Report Type: 
  Country: None (occurrence: None)
  Receive Date: 20101110
  Receipt Date: 20101027
  Transmission Date: 20110411
  Serious: Yes (Other)
  Sender: FDA-Public Use
  Company Number: PHHY2010US72570

PATIENT
  Sex: Female

DRUGS (1)
  1. GLEEVEC [Suspect]
     Indication: CHRONIC MYELOID LEUKAEMIA
     Dosage: 200 MG DAILY
     Route: 048
     Dates: start: 20100903, end: 20101018

REACTIONS (3)
  - MALIGNANT NEOPLASM PROGRESSION [None]
  - NEOPLASM MALIGNANT [None]
  - SMALL CELL LUNG CANCER STAGE UNSPECIFIED [None]
